FAERS Safety Report 8018125-0 (Version None)
Quarter: 2012Q1

REPORT INFORMATION
  Report Type: 
  Country: None (occurrence: None)
  Receive Date: 20120103
  Receipt Date: 20111228
  Transmission Date: 20120608
  Serious: No
  Sender: FDA-Public Use
  Company Number: US-JNJFOC-20120100055

PATIENT
  Sex: Male
  Weight: 81.65 kg

DRUGS (4)
  1. CONCERTA [Concomitant]
     Indication: DISTURBANCE IN ATTENTION
     Route: 048
     Dates: start: 20110101
  2. CONCERTA [Concomitant]
     Indication: HYPERVIGILANCE
     Route: 048
     Dates: start: 20110101
  3. CONCERTA [Concomitant]
     Indication: POOR QUALITY SLEEP
     Route: 048
     Dates: start: 20110101
  4. DURAGESIC-100 [Suspect]
     Indication: CANCER PAIN
     Route: 062
     Dates: start: 20110901

REACTIONS (2)
  - PRODUCT ADHESION ISSUE [None]
  - WRONG TECHNIQUE IN DRUG USAGE PROCESS [None]
